FAERS Safety Report 7830019-X (Version None)
Quarter: 2011Q4

REPORT INFORMATION
  Report Type: 
  Country: None (occurrence: None)
  Receive Date: 20111021
  Receipt Date: 20111012
  Transmission Date: 20120403
  Serious: Yes (Other)
  Sender: FDA-Public Use
  Company Number: US-PERRIGO-11US008704

PATIENT
  Sex: Male
  Weight: 77.098 kg

DRUGS (4)
  1. NICOTINE [Suspect]
     Indication: SMOKING CESSATION THERAPY
     Dosage: UNK, DAILY
     Route: 002
     Dates: start: 20010101, end: 20060101
  2. COMMIT [Suspect]
     Indication: SMOKING CESSATION THERAPY
     Dosage: UNK, INTERMITTENT
     Route: 002
  3. NICOTINE POLACRILEX [Suspect]
     Indication: SMOKING CESSATION THERAPY
     Dosage: UNK, INTERMITTENT
     Route: 002
     Dates: start: 20060101
  4. NICOTINE POLACRILEX [Suspect]
     Indication: SMOKING CESSATION THERAPY
     Dosage: UNK, INTERMITTENT
     Route: 002
     Dates: start: 20060101

REACTIONS (5)
  - OVERDOSE [None]
  - TOBACCO ABUSE [None]
  - NICOTINE DEPENDENCE [None]
  - RECTAL CANCER [None]
  - INCORRECT DRUG ADMINISTRATION DURATION [None]
